FAERS Safety Report 6682631-1 (Version None)
Quarter: 2010Q2

REPORT INFORMATION
  Report Type: 
  Country: None (occurrence: None)
  Receive Date: 20100415
  Receipt Date: 20100406
  Transmission Date: 20101027
  Serious: Yes (Other)
  Sender: FDA-Public Use
  Company Number: PHHY2010GB11046

PATIENT
  Sex: Female

DRUGS (6)
  1. CLOZARIL [Suspect]
     Indication: SCHIZOPHRENIA
     Dosage: 25 MG, UNK
     Route: 048
     Dates: start: 20100114, end: 20100123
  2. VENLAFAXINE HCL [Suspect]
     Indication: DEPRESSION
     Dosage: 375 MG, UNK
     Route: 048
     Dates: start: 20091116, end: 20100123
  3. LEVOTHYROXINE SODIUM [Concomitant]
     Indication: HYPOTHYROIDISM
     Dosage: 25 MCG
     Route: 048
  4. DEPO-PROVERA [Concomitant]
     Indication: CONTRACEPTION
  5. ARIPIPRAZOLE [Concomitant]
     Indication: PSYCHOTIC DISORDER
     Dosage: 30 MG
     Route: 048
  6. MIRTAZAPINE [Concomitant]
     Indication: DEPRESSION
     Dosage: 25 MG
     Route: 048

REACTIONS (4)
  - ARRHYTHMIA [None]
  - DISCOMFORT [None]
  - PALPITATIONS [None]
  - TACHYCARDIA [None]
